FAERS Safety Report 9105173 (Version 2)
Quarter: 2013Q1

REPORT INFORMATION
  Report Type: Spontaneous
  Country: US (occurrence: US)
  Receive Date: 20130221
  Receipt Date: 20130226
  Transmission Date: 20140127
  Serious: No
  Sender: FDA-Public Use
  Company Number: US-009507513-1302USA008811

PATIENT
  Sex: 0

DRUGS (1)
  1. IMPLANON [Suspect]
     Dosage: 1 DF, UNK
     Route: 059
     Dates: start: 20130213

REACTIONS (2)
  - Device difficult to use [Unknown]
  - No adverse event [Unknown]
